FAERS Safety Report 23535099 (Version 1)
Quarter: 2024Q1

REPORT INFORMATION
  Report Type: Spontaneous
  Country: CH (occurrence: CH)
  Receive Date: 20240217
  Receipt Date: 20240217
  Transmission Date: 20240410
  Serious: Yes (Hospitalization, Other)
  Sender: FDA-Public Use
  Company Number: None

PATIENT
  Age: 76 Year
  Sex: Female

DRUGS (9)
  1. REMERON [Suspect]
     Active Substance: MIRTAZAPINE
     Dosage: 15 MILLIGRAM, QD
     Route: 065
     Dates: start: 2023, end: 202310
  2. REMERON [Suspect]
     Active Substance: MIRTAZAPINE
     Dosage: 7.5 MILLIGRAM, QD
     Route: 065
     Dates: start: 202310
  3. VALPROATE SODIUM [Suspect]
     Active Substance: VALPROATE SODIUM
     Indication: Depression
     Dosage: 2 GRAM, QD
     Route: 065
     Dates: start: 2023, end: 202307
  4. ABILIFY [Suspect]
     Active Substance: ARIPIPRAZOLE
     Indication: Depression
     Dosage: UNK
     Route: 065
     Dates: start: 20231024, end: 20231117
  5. OXAZEPAM [Suspect]
     Active Substance: OXAZEPAM
     Dosage: 15 MG 2X/DAY AS RESERVE AS NEEDED (PRN)
     Route: 065
     Dates: start: 2023, end: 20231123
  6. OXAZEPAM [Suspect]
     Active Substance: OXAZEPAM
     Dosage: 7.5 MILLIGRAM, Q12H
     Route: 065
     Dates: start: 20231124
  7. LYRICA [Suspect]
     Active Substance: PREGABALIN
     Dosage: 300 MILLIGRAM, QD
     Route: 065
     Dates: start: 2023, end: 202310
  8. LYRICA [Suspect]
     Active Substance: PREGABALIN
     Dosage: 200 MILLIGRAM
     Route: 065
     Dates: start: 202310
  9. VALPROATE SODIUM [Concomitant]
     Active Substance: VALPROATE SODIUM
     Indication: Depression
     Dosage: 750 MILLIGRAM, Q12H
     Dates: start: 20230728, end: 20231024

REACTIONS (6)
  - Hyponatraemia [Recovered/Resolved]
  - Hypoacusis [Unknown]
  - Seizure [Recovered/Resolved]
  - Fall [Recovered/Resolved]
  - Head injury [Unknown]
  - Loss of consciousness [Recovered/Resolved]

NARRATIVE: CASE EVENT DATE: 20230701
